FAERS Safety Report 6427538-X (Version None)
Quarter: 2009Q4

REPORT INFORMATION
  Report Type: 
  Country: None (occurrence: None)
  Receive Date: 20091030
  Receipt Date: 20091021
  Transmission Date: 20100525
  Serious: Yes (Disabling)
  Sender: FDA-Public Use
  Company Number: ALL1-2009-03190

PATIENT
  Age: 14 Year
  Sex: Male
  Weight: 108.8 kg

DRUGS (3)
  1. VYVANSE [Suspect]
     Indication: ATTENTION DEFICIT/HYPERACTIVITY DISORDER
     Dosage: 40 MG, 1X/DAY:QD, ORAL; 20 MG, 1X/DAY:QD, ORAL
     Route: 048
     Dates: start: 20090801, end: 20091005
  2. VYVANSE [Suspect]
     Indication: ATTENTION DEFICIT/HYPERACTIVITY DISORDER
     Dosage: 40 MG, 1X/DAY:QD, ORAL; 20 MG, 1X/DAY:QD, ORAL
     Route: 048
     Dates: start: 20091006, end: 20091013
  3. CITALOPRAM (CITALOPRAM) TABLET [Concomitant]

REACTIONS (13)
  - ABNORMAL BEHAVIOUR [None]
  - CHOREA [None]
  - DIZZINESS [None]
  - DYSKINESIA [None]
  - EYE ROLLING [None]
  - FEELING HOT [None]
  - GRIMACING [None]
  - HYPERSENSITIVITY [None]
  - IRRITABILITY [None]
  - OFF LABEL USE [None]
  - PRURITUS [None]
  - TARDIVE DYSKINESIA [None]
  - TIC [None]
